FAERS Safety Report 8135646-0 (Version None)
Quarter: 2012Q1

REPORT INFORMATION
  Report Type: 
  Country: None (occurrence: None)
  Receive Date: 20120214
  Receipt Date: 20120207
  Transmission Date: 20120608
  Serious: Yes (Other)
  Sender: FDA-Public Use
  Company Number: PHEH2012US003227

PATIENT
  Sex: Male
  Weight: 104 kg

DRUGS (8)
  1. SIMVASTATIN [Concomitant]
     Route: 048
  2. BACLOFEN [Concomitant]
     Dosage: 30 MG, TID
     Route: 048
  3. LISINOPRIL [Concomitant]
  4. GILENYA [Suspect]
     Dosage: UNK UKN, UNK
  5. CYMBALTA [Concomitant]
     Dosage: 60 MG, QD
     Route: 048
  6. GLIMEPIRIDE [Concomitant]
     Dosage: 2 MG, QD
     Route: 048
  7. HUMULIN R [Concomitant]
     Route: 058
  8. SOLU-MEDROL [Suspect]
     Indication: MULTIPLE SCLEROSIS
     Dosage: UNK
     Dates: end: 20111201

REACTIONS (2)
  - BLOOD GLUCOSE INCREASED [None]
  - CATARACT SUBCAPSULAR [None]
